FAERS Safety Report 16548492 (Version 2)
Quarter: 2019Q3

REPORT INFORMATION
  Report Type: Spontaneous
  Country: FR (occurrence: FR)
  Receive Date: 20190709
  Receipt Date: 20190715
  Transmission Date: 20191004
  Serious: Yes (Hospitalization)
  Sender: FDA-Public Use
  Company Number: FR-ALLERGAN-1927917US

PATIENT
  Sex: Female

DRUGS (2)
  1. ATROPINE UNK [Suspect]
     Active Substance: ATROPINE SULFATE
     Dosage: 1 GTT, QD
     Route: 002
     Dates: start: 201809
  2. ATROPINE UNK [Suspect]
     Active Substance: ATROPINE SULFATE
     Indication: SALIVARY HYPERSECRETION
     Dosage: 2 GTT, QD
     Route: 047
     Dates: start: 20190604

REACTIONS (4)
  - Off label use [Unknown]
  - Constipation [Recovered/Resolved]
  - Urinary retention [Recovered/Resolved]
  - Atrial fibrillation [Recovered/Resolved]

NARRATIVE: CASE EVENT DATE: 201809
